FAERS Safety Report 6086260-2 (Version None)
Quarter: 2009Q1

REPORT INFORMATION
  Report Type: 
  Country: None (occurrence: None)
  Receive Date: 20090220
  Receipt Date: 20080805
  Transmission Date: 20090719
  Serious: No
  Sender: FDA-Public Use
  Company Number: US-ASTRAZENECA-2008UW15871

PATIENT
  Age: 68 Year
  Sex: Male

DRUGS (1)
  1. PLENDIL [Suspect]
     Indication: BLOOD PRESSURE
     Route: 048

REACTIONS (1)
  - MEDICATION RESIDUE [None]
